FAERS Safety Report 17190042 (Version 5)
Quarter: 2021Q3

REPORT INFORMATION
  Report Type: Spontaneous
  Country: DE (occurrence: DE)
  Receive Date: 20191223
  Receipt Date: 20210812
  Transmission Date: 20211014
  Serious: Yes (Hospitalization, Other)
  Sender: FDA-Public Use
  Company Number: DE-AUROBINDO-AUR-APL-2019-104545

PATIENT
  Age: 7 Year
  Sex: Female

DRUGS (26)
  1. SULTIAME [Suspect]
     Active Substance: SULTHIAME
     Indication: PARTIAL SEIZURES
     Dosage: UNK
     Route: 065
  2. VALPROATE [Suspect]
     Active Substance: VALPROIC ACID
     Indication: PARTIAL SEIZURES
     Dosage: UNK
     Route: 065
  3. LACOSAMIDE. [Suspect]
     Active Substance: LACOSAMIDE
     Indication: TUBEROUS SCLEROSIS COMPLEX
  4. CANNABIDIOL [Interacting]
     Active Substance: CANNABIDIOL
     Indication: PARTIAL SEIZURES
     Dosage: 200 MILLIGRAM, ONCE A DAY  (9.3MG/KG/DAY)
     Route: 065
  5. OXCARBAZEPINE. [Suspect]
     Active Substance: OXCARBAZEPINE
     Indication: PARTIAL SEIZURES
     Dosage: UNK
     Route: 065
  6. EVEROLIMUS. [Interacting]
     Active Substance: EVEROLIMUS
     Indication: VENTRICULAR ARRHYTHMIA
     Dosage: 0.6 MILLIGRAM/KILOGRAM, ONCE A DAY
     Route: 065
     Dates: start: 2018
  7. CARBAMAZEPINE. [Suspect]
     Active Substance: CARBAMAZEPINE
     Indication: PARTIAL SEIZURES
     Dosage: UNK
     Route: 065
  8. CLOBAZAM. [Interacting]
     Active Substance: CLOBAZAM
     Indication: TUBEROUS SCLEROSIS COMPLEX
  9. CLOBAZAM. [Concomitant]
     Active Substance: CLOBAZAM
     Indication: TUBEROUS SCLEROSIS COMPLEX
     Dosage: 5 MILLIGRAM, ONCE A DAY (2.5MG BID)
     Route: 065
  10. EVEROLIMUS. [Interacting]
     Active Substance: EVEROLIMUS
     Indication: EPILEPSY
     Dosage: 0.3 MILLIGRAM/KILOGRAM, ONCE A DAY
     Route: 065
     Dates: start: 201801, end: 201809
  11. CANNABIDIOL [Interacting]
     Active Substance: CANNABIDIOL
     Indication: TUBEROUS SCLEROSIS COMPLEX
     Dosage: 500 MILLIGRAM, ONCE A DAY (20.4MG/KG/DAY)
     Route: 065
  12. EVEROLIMUS. [Interacting]
     Active Substance: EVEROLIMUS
     Indication: PARTIAL SEIZURES
     Dosage: 0.13 MILLIGRAM/KILOGRAM, ONCE A DAY
     Route: 065
  13. LAMOTRIGINE. [Suspect]
     Active Substance: LAMOTRIGINE
     Indication: PARTIAL SEIZURES
     Dosage: UNK
     Route: 065
  14. LACOSAMIDE. [Concomitant]
     Active Substance: LACOSAMIDE
     Indication: TUBEROUS SCLEROSIS COMPLEX
     Dosage: UNK
     Route: 065
  15. EVEROLIMUS. [Interacting]
     Active Substance: EVEROLIMUS
     Indication: TUBEROUS SCLEROSIS COMPLEX
     Dosage: 0.15 MILLIGRAM/KILOGRAM, ONCE A DAY
     Route: 065
     Dates: start: 201712
  16. CANNABIDIOL [Interacting]
     Active Substance: CANNABIDIOL
     Indication: EPILEPSY
     Dosage: INITIAL DOSE UNKNOWN; OILY SOLUTION
     Route: 065
     Dates: start: 20180928, end: 201903
  17. ZONISAMIDE. [Suspect]
     Active Substance: ZONISAMIDE
     Indication: PARTIAL SEIZURES
     Dosage: UNK
     Route: 065
  18. PROPRANOLOL [Concomitant]
     Active Substance: PROPRANOLOL HYDROCHLORIDE
     Indication: TUBEROUS SCLEROSIS COMPLEX
     Dosage: UNK
     Route: 065
  19. EVEROLIMUS. [Interacting]
     Active Substance: EVEROLIMUS
     Dosage: 5 MILLIGRAM, ONCE A DAY
     Route: 048
     Dates: start: 20190928
  20. LACOSAMIDE. [Suspect]
     Active Substance: LACOSAMIDE
     Indication: PARTIAL SEIZURES
     Dosage: UNK
     Route: 065
  21. LEVETIRACETAM. [Suspect]
     Active Substance: LEVETIRACETAM
     Indication: PARTIAL SEIZURES
     Dosage: UNK
     Route: 065
  22. CLOBAZAM. [Interacting]
     Active Substance: CLOBAZAM
     Indication: PARTIAL SEIZURES
     Dosage: 2.5 MILLIGRAM, TWO TIMES A DAY
     Route: 065
     Dates: start: 2018
  23. LAMOTRIGINE. [Concomitant]
     Active Substance: LAMOTRIGINE
     Indication: TUBEROUS SCLEROSIS COMPLEX
     Dosage: UNK
     Route: 065
  24. LAMOTRIGINE. [Suspect]
     Active Substance: LAMOTRIGINE
     Indication: TUBEROUS SCLEROSIS COMPLEX
  25. TOPIRAMATE. [Suspect]
     Active Substance: TOPIRAMATE
     Indication: PARTIAL SEIZURES
     Dosage: UNK
     Route: 065
  26. VIGABATRIN. [Suspect]
     Active Substance: VIGABATRIN
     Indication: PARTIAL SEIZURES
     Dosage: UNK
     Route: 065

REACTIONS (7)
  - Drug ineffective [Unknown]
  - Therapeutic product ineffective for unapproved indication [Recovered/Resolved]
  - Off label use [Not Recovered/Not Resolved]
  - Drug interaction [Recovered/Resolved]
  - Epilepsy [Unknown]
  - Tonic convulsion [Unknown]
  - Drug level increased [Recovered/Resolved]

NARRATIVE: CASE EVENT DATE: 20181027
